FAERS Safety Report 12749982 (Version 1)
Quarter: 2016Q3

REPORT INFORMATION
  Report Type: Other
  Country: US (occurrence: US)
  Receive Date: 20160916
  Receipt Date: 20160916
  Transmission Date: 20161109
  Serious: Yes (Other)
  Sender: FDA-Public Use
  Company Number: US-COL_24248_2016

PATIENT
  Sex: Female

DRUGS (1)
  1. COLGATE TOTAL CLEAN MINT [Suspect]
     Active Substance: SODIUM FLUORIDE\TRICLOSAN
     Indication: DENTAL DISORDER PROPHYLAXIS
     Dosage: NI/NI/
     Route: 048

REACTIONS (1)
  - Breast neoplasm [Unknown]
